FAERS Safety Report 6166237-9 (Version None)
Quarter: 2009Q2

REPORT INFORMATION
  Report Type: 
  Country: None (occurrence: None)
  Receive Date: 20090424
  Receipt Date: 20090415
  Transmission Date: 20091009
  Serious: Yes (Hospitalization)
  Sender: FDA-Public Use
  Company Number: PHHY2009JP14320

PATIENT
  Age: 32 Year
  Sex: Female

DRUGS (2)
  1. VOLTAREN [Suspect]
     Indication: BACK PAIN
     Route: 048
  2. LORCAM [Suspect]
     Indication: BACK PAIN
     Route: 048

REACTIONS (2)
  - OVERDOSE [None]
  - WHITE BLOOD CELL COUNT INCREASED [None]
